FAERS Safety Report 21244457 (Version 1)
Quarter: 2022Q3

REPORT INFORMATION
  Report Type: Spontaneous
  Country: MA (occurrence: MA)
  Receive Date: 20220823
  Receipt Date: 20220823
  Transmission Date: 20221026
  Serious: Yes (Other)
  Sender: FDA-Public Use
  Company Number: MA-MYLANLABS-2022M1088307

PATIENT
  Age: 47 Year
  Sex: Male

DRUGS (6)
  1. CISPLATIN [Suspect]
     Active Substance: CISPLATIN
     Indication: Nasopharyngeal cancer
     Dosage: 75 MILLIGRAM/SQ. METER, CYCLE, 1 HOUR PERFUSION; ON DAY 1, FOR 3 CYCLES + 3 CYCLES (ADDITIONAL)
     Route: 065
  2. CISPLATIN [Suspect]
     Active Substance: CISPLATIN
     Indication: Metastases to eye
  3. DOCETAXEL [Suspect]
     Active Substance: DOCETAXEL
     Indication: Nasopharyngeal cancer
     Dosage: 75 MILLIGRAM/SQ. METER, CYCLE, 1 HOUR PERFUSION; ON DAY 1; FOR 3 CYCLES+ 3 CYCLES (ADDITIONAL)
     Route: 065
  4. DOCETAXEL [Suspect]
     Active Substance: DOCETAXEL
     Indication: Metastases to eye
  5. FLUOROURACIL [Suspect]
     Active Substance: FLUOROURACIL
     Indication: Nasopharyngeal cancer
     Dosage: 750 MILLIGRAM/SQ. METER, CYCLE
     Route: 065
  6. FLUOROURACIL [Suspect]
     Active Substance: FLUOROURACIL
     Indication: Metastases to eye

REACTIONS (2)
  - Drug ineffective [Unknown]
  - Neoplasm progression [Unknown]
